FAERS Safety Report 7940648-0 (Version None)
Quarter: 2011Q4

REPORT INFORMATION
  Report Type: 
  Country: None (occurrence: None)
  Receive Date: 20111128
  Receipt Date: 20111121
  Transmission Date: 20120403
  Serious: Yes (Other)
  Sender: FDA-Public Use
  Company Number: US-AMGEN-USASP2011056612

PATIENT
  Age: 62 Year
  Sex: Female

DRUGS (3)
  1. RITUXIMAB [Concomitant]
     Indication: IDIOPATHIC THROMBOCYTOPENIC PURPURA
  2. DANAZOL [Concomitant]
     Indication: IDIOPATHIC THROMBOCYTOPENIC PURPURA
  3. NPLATE [Suspect]
     Indication: IDIOPATHIC THROMBOCYTOPENIC PURPURA
     Dosage: UNK
     Dates: start: 20111108

REACTIONS (6)
  - BIOPSY BONE MARROW ABNORMAL [None]
  - ANISOCYTOSIS [None]
  - THROMBOCYTOPENIA [None]
  - ANAEMIA [None]
  - ERYTHROPOIESIS ABNORMAL [None]
  - MEGAKARYOCYTES INCREASED [None]
